FAERS Safety Report 10994755 (Version 1)
Quarter: 2015Q2

REPORT INFORMATION
  Report Type: Spontaneous
  Country: None (occurrence: None)
  Receive Date: 20150406
  Receipt Date: 20150406
  Transmission Date: 20150821
  Serious: Yes (Other)
  Sender: FDA-Public Use
  Company Number: None

PATIENT
  Age: 3 Month
  Sex: Male
  Weight: 72.58 kg

DRUGS (8)
  1. SOMA [Concomitant]
     Active Substance: CARISOPRODOL
  2. TYLENOL [Concomitant]
     Active Substance: ACETAMINOPHEN
  3. CARISOPRODOL. [Suspect]
     Active Substance: CARISOPRODOL
     Indication: MUSCLE SPASMS
     Dosage: TAKEN FOR YEARS; 1 PILL
     Route: 048
  4. LISINIPRIL [Concomitant]
  5. METOPROLOL [Concomitant]
     Active Substance: METOPROLOL
  6. NEPHEDIPINE [Concomitant]
  7. IBUPROPHEN [Concomitant]
     Active Substance: IBUPROFEN
  8. XANAX [Concomitant]
     Active Substance: ALPRAZOLAM

REACTIONS (3)
  - Drug ineffective [None]
  - Product substitution issue [None]
  - Unevaluable event [None]

NARRATIVE: CASE EVENT DATE: 20150402
